FAERS Safety Report 8590927 (Version 3)
Quarter: 2012Q4

REPORT INFORMATION
  Report Type: 
  Country: US (occurrence: US)
  Receive Date: 20120601
  Receipt Date: 20121005
  Transmission Date: 20130627
  Serious: Yes (Hospitalization)
  Sender: FDA-Public Use
  Company Number: US-GLAXOSMITHKLINE-A0979688A

PATIENT
  Age: 62 Year

DRUGS (9)
  1. FLOLAN [Suspect]
     Indication: PRODUCT USED FOR UNKNOWN INDICATION
     Dosage: 25.5NGKM Continuous
     Route: 042
     Dates: start: 19991004
  2. EPOPROSTENOL SODIUM [Suspect]
     Indication: PRODUCT USED FOR UNKNOWN INDICATION
     Route: 042
  3. LASIX [Concomitant]
  4. PRILOSEC [Concomitant]
  5. REVATIO [Concomitant]
  6. ALDACTONE [Concomitant]
  7. COMBIVENT [Concomitant]
  8. LACTULOSE [Concomitant]
  9. HEPARIN [Concomitant]

REACTIONS (3)
  - Medical device complication [Unknown]
  - Protrusion tongue [Unknown]
  - Swollen tongue [Unknown]
